FAERS Safety Report 5400589-X (Version None)
Quarter: 2007Q4

REPORT INFORMATION
  Report Type: 
  Country: None (occurrence: None)
  Receive Date: 20070730
  Receipt Date: 20060720
  Transmission Date: 20080405
  Serious: No
  Sender: FDA-Public Use
  Company Number: A0613346A

PATIENT
  Age: 26 Year
  Sex: Female

DRUGS (2)
  1. ZANTAC 150 [Suspect]
     Indication: DRUG USE FOR UNKNOWN INDICATION
     Route: 065
     Dates: start: 20060610
  2. MAALOX [Suspect]
     Indication: STOMACH DISCOMFORT
     Dosage: 18TSP SEE DOSAGE TEXT
     Route: 048
     Dates: start: 20060610

REACTIONS (2)
  - FAECES DISCOLOURED [None]
  - OVERDOSE [None]
